FAERS Safety Report 14784217 (Version 2)
Quarter: 2019Q3

REPORT INFORMATION
  Report Type: Spontaneous
  Country: US (occurrence: US)
  Receive Date: 20180420
  Receipt Date: 20190808
  Transmission Date: 20191004
  Serious: Yes (Other)
  Sender: FDA-Public Use
  Company Number: US-TAKEDA-2018TUS010350

PATIENT

DRUGS (28)
  1. PROTONIX [Suspect]
     Active Substance: PANTOPRAZOLE SODIUM
     Indication: PRODUCT USED FOR UNKNOWN INDICATION
     Dosage: UNK
     Route: 048
     Dates: start: 2011, end: 2016
  2. PREVACID [Suspect]
     Active Substance: LANSOPRAZOLE
     Indication: PRODUCT USED FOR UNKNOWN INDICATION
     Dosage: UNK
     Route: 048
     Dates: start: 2011, end: 2016
  3. PRILOSEC [Suspect]
     Active Substance: OMEPRAZOLE MAGNESIUM
     Indication: PRODUCT USED FOR UNKNOWN INDICATION
     Dosage: UNK
     Route: 048
     Dates: start: 2011, end: 2016
  4. CRESTOR [Concomitant]
     Active Substance: ROSUVASTATIN CALCIUM
     Dosage: 5  MG, UNK
     Dates: start: 2007
  5. AMOXICILLIN. [Concomitant]
     Active Substance: AMOXICILLIN
     Dosage: 875 MG, UNK
     Dates: start: 2007
  6. SMZ-TMP DS [Concomitant]
     Active Substance: SULFAMETHOXAZOLE\TRIMETHOPRIM
     Dosage: UNK, 800-160
     Dates: start: 2008
  7. HUMULIN NOS [Concomitant]
     Active Substance: INSULIN HUMAN
     Dosage: UNK, 70/30
     Dates: start: 2007, end: 2009
  8. NIFEDIPINE. [Concomitant]
     Active Substance: NIFEDIPINE
     Dosage: 60 MG, UNK
     Dates: start: 2007, end: 2008
  9. DEXILANT [Suspect]
     Active Substance: DEXLANSOPRAZOLE
     Indication: PRODUCT USED FOR UNKNOWN INDICATION
     Dosage: UNK
     Route: 048
     Dates: start: 2011, end: 2016
  10. RELION/NOVOLIN [Concomitant]
     Dosage: UNK, 70/30
     Dates: start: 2013
  11. TRICOR [Concomitant]
     Active Substance: FENOFIBRATE
     Dosage: 145 MG, UNK
     Dates: start: 2007, end: 2008
  12. OMNICEF [Concomitant]
     Active Substance: CEFDINIR
     Dosage: 300 MG, UNK
     Dates: start: 2007
  13. CIPROFLOXACIN. [Concomitant]
     Active Substance: CIPROFLOXACIN
     Dosage: 500 MG, UNK
     Dates: start: 2008
  14. OMEPRAZOLE. [Suspect]
     Active Substance: OMEPRAZOLE
     Indication: PRODUCT USED FOR UNKNOWN INDICATION
     Dosage: 20 MILLIGRAM
     Route: 048
     Dates: start: 2007
  15. PROPOXYPHENE N/APAP [Concomitant]
     Active Substance: ACETAMINOPHEN\PROPOXYPHENE NAPSYLATE
     Dosage: UNK, 100-650 MG
     Dates: start: 2007
  16. TOPROL XL [Concomitant]
     Active Substance: METOPROLOL SUCCINATE
     Dosage: 200 MG, UNK
     Dates: start: 2007
  17. LIPITOR [Concomitant]
     Active Substance: ATORVASTATIN CALCIUM
     Dosage: 10 MG, UNK
     Dates: start: 2007
  18. PROPYLTHIOURAC [Concomitant]
     Dosage: 50 MG, UNK
     Dates: start: 2007
  19. NEXIUM [Suspect]
     Active Substance: ESOMEPRAZOLE MAGNESIUM
     Indication: GASTROOESOPHAGEAL REFLUX DISEASE
     Dosage: UNK
     Route: 048
     Dates: start: 2011, end: 2016
  20. NEXIUM 24HR [Suspect]
     Active Substance: ESOMEPRAZOLE MAGNESIUM
     Indication: PRODUCT USED FOR UNKNOWN INDICATION
     Dosage: UNK
     Route: 048
     Dates: start: 2011, end: 2016
  21. OMEPRAZOLE MAGNESIUM. [Suspect]
     Active Substance: OMEPRAZOLE MAGNESIUM
     Indication: PRODUCT USED FOR UNKNOWN INDICATION
     Dosage: UNK
     Route: 048
     Dates: start: 2011, end: 2016
  22. LORATADINE. [Concomitant]
     Active Substance: LORATADINE
     Dosage: 10 MG, UNK
     Dates: start: 2007
  23. LORTAB                             /00917501/ [Concomitant]
     Active Substance: LORATADINE
     Dosage: UNK, 5-500 MG
     Dates: start: 2008
  24. PREVACID 24 HR [Suspect]
     Active Substance: LANSOPRAZOLE
     Indication: PRODUCT USED FOR UNKNOWN INDICATION
     Dosage: UNK
     Route: 048
     Dates: start: 2011, end: 2016
  25. NEXIUM [Suspect]
     Active Substance: ESOMEPRAZOLE MAGNESIUM
     Dosage: 40 MILLIGRAM, QD
     Route: 048
     Dates: start: 2004, end: 2019
  26. METOPROLOL. [Concomitant]
     Active Substance: METOPROLOL
     Dosage: 200 MG, UNK
     Dates: start: 2007, end: 2008
  27. HYDROCODONE BITARTRATE AND ACETAMINOPHEN [Concomitant]
     Active Substance: ACETAMINOPHEN\HYDROCODONE BITARTRATE
     Dosage: UNK, 5-500 MG
     Dates: start: 2008
  28. BENICAR HCT [Concomitant]
     Active Substance: HYDROCHLOROTHIAZIDE\OLMESARTAN MEDOXOMIL
     Dosage: UNK, 40-25 MG
     Dates: start: 2007, end: 2008

REACTIONS (6)
  - Renal failure [Not Recovered/Not Resolved]
  - Renal impairment [Unknown]
  - Rebound acid hypersecretion [Unknown]
  - Chronic kidney disease [Not Recovered/Not Resolved]
  - Acute kidney injury [Not Recovered/Not Resolved]
  - Renal haemangioma [Unknown]

NARRATIVE: CASE EVENT DATE: 2014
